FAERS Safety Report 4969668-5 (Version None)
Quarter: 2006Q2

REPORT INFORMATION
  Report Type: 
  Country: None (occurrence: None)
  Receive Date: 20060411
  Receipt Date: 20060406
  Transmission Date: 20061013
  Serious: Yes (Death)
  Sender: FDA-Public Use
  Company Number: BR-BOEHRINGER INGELHEIM PHARMACEUTICALS, INC.-2006-BP-03863BR

PATIENT
  Sex: Male
  Weight: 50 kg

DRUGS (4)
  1. SPIRIVA [Suspect]
     Indication: CHRONIC OBSTRUCTIVE PULMONARY DISEASE
  2. FORASEQ [Concomitant]
  3. NEBULIZAC?ES [Concomitant]
     Route: 055
  4. CORTICOIDE [Concomitant]
     Indication: HYPERTENSIVE HEART DISEASE

REACTIONS (1)
  - LUNG INFECTION [None]
